FAERS Safety Report 9679130 (Version 3)
Quarter: 2013Q4

REPORT INFORMATION
  Report Type: Spontaneous
  Country: US (occurrence: US)
  Receive Date: 20131108
  Receipt Date: 20131115
  Transmission Date: 20140711
  Serious: Yes (Other)
  Sender: FDA-Public Use
  Company Number: CHPA2011US13065

PATIENT
  Age: 66 Year
  Sex: Female

DRUGS (3)
  1. VOLTAREN GEL [Suspect]
     Indication: TENDONITIS
     Dosage: 2 G, BID
     Route: 061
     Dates: start: 201310
  2. VOLTAREN GEL [Suspect]
     Indication: ARTHRITIS
     Dosage: 2 G, 3 TIMES
     Route: 061
     Dates: start: 20110925
  3. VOLTAREN GEL [Suspect]
     Indication: EXOSTOSIS
     Dosage: 2 G, BID
     Route: 061
     Dates: start: 2011

REACTIONS (7)
  - Tendonitis [Recovered/Resolved]
  - Exostosis [Not Recovered/Not Resolved]
  - Arthritis [Not Recovered/Not Resolved]
  - Rebound effect [Not Recovered/Not Resolved]
  - Hypersensitivity [Not Recovered/Not Resolved]
  - Drug ineffective for unapproved indication [Unknown]
  - Off label use [Unknown]
